FAERS Safety Report 24658448 (Version 1)
Quarter: 2024Q4

REPORT INFORMATION
  Report Type: Spontaneous
  Country: GB (occurrence: GB)
  Receive Date: 20241125
  Receipt Date: 20241125
  Transmission Date: 20250115
  Serious: Yes (Other)
  Sender: TEVA
  Company Number: GB-MHRA-EMIS-3186-5bf793ee-3942-4cce-8d30-d4ebf74a76df

PATIENT
  Age: 71 Year
  Sex: Female
  Weight: 74 kg

DRUGS (6)
  1. NAPROXEN [Suspect]
     Active Substance: NAPROXEN
     Indication: Product used for unknown indication
     Dosage: 1 - 2 TABLETS TWICE A DAY WITH/AFTER FOOD WHEN REQUIRED
     Route: 065
     Dates: start: 20241010, end: 20241108
  2. NASONEX [Concomitant]
     Active Substance: MOMETASONE FUROATE
     Indication: Product used for unknown indication
     Dosage: TWO SPRAYS TO BE USED IN EACH NOSTRIL TWICE A DAY, THEN REDUCE WHEN SYMPTOMS UNDER CONTROL,   50M...
     Route: 045
     Dates: start: 20240829, end: 20241011
  3. Adjuvanted quadrivalent influenza vaccine [Concomitant]
     Indication: Product used for unknown indication
     Dosage: IMMEDIATELY   (SURFACE ANTIGEN, INACTIVATED) SUSPENSION FOR INJECTION 0.5ML PRE-FILLED SYRINGES (...
     Dates: start: 20241012, end: 20241012
  4. Sylk [Concomitant]
     Indication: Product used for unknown indication
     Dosage: VAGINAL MOISTURISER (SYLK LTD) WHEN REQUIRED?40G
     Route: 067
     Dates: start: 20240926, end: 20241108
  5. ESTRADIOL [Concomitant]
     Active Substance: ESTRADIOL
     Indication: Product used for unknown indication
     Dosage: THEN ONE TWICE WEEKLY
     Route: 065
     Dates: start: 20241009
  6. ReplensMD [Concomitant]
     Indication: Product used for unknown indication
     Dosage: VAGINAL MOISTURISER TUBE (CHURCH + DWIGHT UK LTD) AS NEEDED?35G
     Route: 067
     Dates: start: 20240926, end: 20241108

REACTIONS (1)
  - Acute kidney injury [Unknown]

NARRATIVE: CASE EVENT DATE: 20241106
